FAERS Safety Report 6265243-3 (Version None)
Quarter: 2009Q3

REPORT INFORMATION
  Report Type: 
  Country: None (occurrence: None)
  Receive Date: 20090709
  Receipt Date: 20090709
  Transmission Date: 20100115
  Serious: Yes (Hospitalization)
  Sender: FDA-Public Use
  Company Number: None

PATIENT
  Sex: Female
  Weight: 65.6 kg

DRUGS (6)
  1. CYCLOPHOSPHAMIDE [Suspect]
     Dosage: 1100 MG
  2. DOXORUBICIN HCL [Suspect]
     Dosage: 110 MG
  3. COLACE [Concomitant]
  4. NEXIUM [Concomitant]
  5. OXYCODONE [Concomitant]
  6. SYNTHROID [Concomitant]

REACTIONS (19)
  - CATHETER SITE ERYTHEMA [None]
  - DIARRHOEA [None]
  - DYSGEUSIA [None]
  - DYSPHAGIA [None]
  - DYSURIA [None]
  - FEBRILE NEUTROPENIA [None]
  - HEADACHE [None]
  - HEART RATE INCREASED [None]
  - HYPOPHAGIA [None]
  - MUCOSAL INFLAMMATION [None]
  - NAUSEA [None]
  - NEUTROPHIL COUNT DECREASED [None]
  - ODYNOPHAGIA [None]
  - OPEN WOUND [None]
  - ORAL PAIN [None]
  - PAIN [None]
  - PYREXIA [None]
  - STOMATITIS [None]
  - WOUND SECRETION [None]
